FAERS Safety Report 12072915 (Version 1)
Quarter: 2016Q1

REPORT INFORMATION
  Report Type: Spontaneous
  Country: ES (occurrence: ES)
  Receive Date: 20160212
  Receipt Date: 20160212
  Transmission Date: 20160526
  Serious: Yes (Other)
  Sender: FDA-Public Use
  Company Number: ES-TEVA-633555ISR

PATIENT
  Age: 61 Year
  Sex: Female

DRUGS (1)
  1. ETOPOSIDO TEVA 20 MG/ML CONCENTRADO PARA SOLUCION PARA PERFUSION, 1 VI [Suspect]
     Active Substance: ETOPOSIDE
     Route: 042
     Dates: start: 20151216, end: 20151216

REACTIONS (3)
  - Dizziness [Recovered/Resolved]
  - Hypertension [Recovered/Resolved]
  - Presyncope [Recovered/Resolved]

NARRATIVE: CASE EVENT DATE: 20151216
